FAERS Safety Report 24264069 (Version 1)
Quarter: 2024Q3

REPORT INFORMATION
  Report Type: Spontaneous
  Country: US (occurrence: None)
  Receive Date: 20240828
  Receipt Date: 20240828
  Transmission Date: 20241017
  Serious: Yes (Life-Threatening, Other)
  Sender: Public
  Company Number: None

PATIENT
  Age: 38 Year
  Sex: Female
  Weight: 108.9 kg

DRUGS (3)
  1. LEVOCARNITINE\SEMAGLUTIDE [Suspect]
     Active Substance: LEVOCARNITINE\SEMAGLUTIDE
     Indication: Obesity
     Dosage: OTHER STRENGTH : MCG/ML;?OTHER QUANTITY : 20 INJECTION(S);?OTHER FREQUENCY : WEEKLY;?OTHER ROUTE : S
     Route: 050
     Dates: start: 20240623, end: 20240818
  2. Hydroxycholorquine [Concomitant]
  3. UNISOM SLEEPTABS [Concomitant]
     Active Substance: DOXYLAMINE SUCCINATE

REACTIONS (5)
  - Cerebrovascular accident [None]
  - Blindness unilateral [None]
  - Ophthalmic migraine [None]
  - Migraine [None]
  - Retinal vein occlusion [None]

NARRATIVE: CASE EVENT DATE: 20240716
